FAERS Safety Report 19787963 (Version 1)
Quarter: 2021Q3

REPORT INFORMATION
  Report Type: Spontaneous
  Country: IR (occurrence: IR)
  Receive Date: 20210903
  Receipt Date: 20210903
  Transmission Date: 20211014
  Serious: Yes (Hospitalization)
  Sender: FDA-Public Use
  Company Number: IR-JUBILANT CADISTA PHARMACEUTICALS-2021JUB00255

PATIENT
  Age: 26 Year
  Sex: Male

DRUGS (1)
  1. LAMOTRIGINE. [Suspect]
     Active Substance: LAMOTRIGINE
     Dosage: 1 G, ONCE
     Route: 048

REACTIONS (6)
  - Endotracheal intubation [Recovered/Resolved]
  - Accelerated idioventricular rhythm [Recovered/Resolved]
  - Hypotension [Recovered/Resolved]
  - Overdose [Recovered/Resolved]
  - Coma [Recovered/Resolved]
  - Suicide attempt [Recovered/Resolved]
